FAERS Safety Report 12838496 (Version 2)
Quarter: 2016Q4

REPORT INFORMATION
  Report Type: Spontaneous
  Country: CH (occurrence: CH)
  Receive Date: 20161012
  Receipt Date: 20161129
  Transmission Date: 20170207
  Serious: Yes (Hospitalization)
  Sender: FDA-Public Use
  Company Number: PHHY2016CH139078

PATIENT
  Age: 28 Year
  Sex: Female

DRUGS (5)
  1. TYSABRI [Suspect]
     Active Substance: NATALIZUMAB
     Indication: PRODUCT USED FOR UNKNOWN INDICATION
     Dosage: UNK
     Route: 042
     Dates: start: 20160608
  2. TYSABRI [Suspect]
     Active Substance: NATALIZUMAB
     Dosage: UNK
     Route: 042
     Dates: start: 20160706
  3. TYSABRI [Suspect]
     Active Substance: NATALIZUMAB
     Dosage: UNK
     Route: 042
     Dates: start: 20160908
  4. TYSABRI [Suspect]
     Active Substance: NATALIZUMAB
     Dosage: UNK
     Route: 042
     Dates: start: 20160803
  5. GILENYA [Suspect]
     Active Substance: FINGOLIMOD HYDROCHLORIDE
     Indication: MULTIPLE SCLEROSIS
     Dosage: 0.5 MG, UNK
     Route: 048
     Dates: start: 20150518, end: 201605

REACTIONS (26)
  - Paresis [Unknown]
  - Fatigue [Unknown]
  - Visual acuity reduced [Recovered/Resolved]
  - Visual field defect [Unknown]
  - Protein total decreased [Unknown]
  - Blood creatine phosphokinase decreased [Unknown]
  - Activated partial thromboplastin time shortened [Unknown]
  - Lymphocyte count increased [Unknown]
  - Hypoaesthesia [Unknown]
  - Dyschromatopsia [Unknown]
  - Gait disturbance [Unknown]
  - Specific gravity urine decreased [Unknown]
  - Bacteriuria [Unknown]
  - Muscle spasticity [Unknown]
  - Blindness [Unknown]
  - Urinary sediment present [Unknown]
  - Optic neuritis [Not Recovered/Not Resolved]
  - Blood iron increased [Unknown]
  - Blood albumin decreased [Unknown]
  - Blood glucose increased [Unknown]
  - Blood 25-hydroxycholecalciferol increased [Unknown]
  - Multiple sclerosis relapse [Recovered/Resolved]
  - Diplopia [Recovered/Resolved]
  - Basophil count increased [Unknown]
  - C-reactive protein increased [Unknown]
  - Transferrin saturation increased [Unknown]

NARRATIVE: CASE EVENT DATE: 20160525
